FAERS Safety Report 10922938 (Version 2)
Quarter: 2015Q1

REPORT INFORMATION
  Report Type: Spontaneous
  Country: JP (occurrence: JP)
  Receive Date: 20150317
  Receipt Date: 20150325
  Transmission Date: 20150721
  Serious: Yes (Death)
  Sender: FDA-Public Use
  Company Number: JP-PFIZER INC-2015081265

PATIENT
  Age: 40 Year
  Sex: Male

DRUGS (1)
  1. INLYTA [Suspect]
     Active Substance: AXITINIB
     Indication: RENAL CELL CARCINOMA
     Dosage: 10 MG, DAILY
     Route: 048
     Dates: start: 20131203, end: 2014

REACTIONS (4)
  - Respiratory failure [Fatal]
  - Renal cell carcinoma [Fatal]
  - Disease progression [Fatal]
  - Protein urine present [Recovered/Resolved]

NARRATIVE: CASE EVENT DATE: 20140107
